FAERS Safety Report 16230377 (Version 2)
Quarter: 2019Q4

REPORT INFORMATION
  Report Type: Spontaneous
  Country: RO (occurrence: RO)
  Receive Date: 20190423
  Receipt Date: 20191126
  Transmission Date: 20200122
  Serious: Yes (Other)
  Sender: FDA-Public Use
  Company Number: PHHY2019RO089049

PATIENT
  Age: 57 Year
  Sex: Female

DRUGS (6)
  1. HERCEPTIN [Suspect]
     Active Substance: TRASTUZUMAB
     Indication: BREAST CANCER METASTATIC
     Dosage: 600 MG, PER 21 DAYS
     Route: 058
     Dates: start: 201808
  2. LETROZOLE. [Concomitant]
     Active Substance: LETROZOLE
     Indication: BREAST CANCER METASTATIC
     Dosage: 2.5 MG, UNK
     Route: 065
     Dates: start: 201902
  3. PACLITAXEL. [Suspect]
     Active Substance: PACLITAXEL
     Indication: BREAST CANCER METASTATIC
     Dosage: 80 MG/M2, UNK
     Route: 065
     Dates: start: 201808, end: 201901
  4. PACLITAXEL. [Suspect]
     Active Substance: PACLITAXEL
     Dosage: 80 MG/M2
     Route: 065
     Dates: start: 201808, end: 201901
  5. PERJETA [Suspect]
     Active Substance: PERTUZUMAB
     Indication: BREAST CANCER METASTATIC
     Dosage: 420 MG, PER 21 DAYS
     Route: 065
     Dates: start: 201811
  6. ZOMETA [Concomitant]
     Active Substance: ZOLEDRONIC ACID
     Indication: BREAST CANCER METASTATIC
     Dosage: 4 MG, PER 28 DAYS
     Route: 065
     Dates: start: 201808

REACTIONS (4)
  - Intentional product use issue [Unknown]
  - Toxic neuropathy [Unknown]
  - Off label use [Unknown]
  - Anaemia [Unknown]

NARRATIVE: CASE EVENT DATE: 201902
